FAERS Safety Report 8419417-3 (Version None)
Quarter: 2012Q2

REPORT INFORMATION
  Report Type: 
  Country: None (occurrence: None)
  Receive Date: 20120607
  Receipt Date: 20120530
  Transmission Date: 20120825
  Serious: Yes (Hospitalization, Other)
  Sender: FDA-Public Use
  Company Number: US-GLAXOSMITHKLINE-A0979499A

PATIENT
  Age: 61 Year
  Sex: Female

DRUGS (9)
  1. SINGULAIR [Concomitant]
  2. NASONEX [Concomitant]
  3. FUROSEMIDE [Concomitant]
  4. ZOCOR [Concomitant]
  5. ADVAIR DISKUS 100/50 [Suspect]
     Indication: PRODUCT USED FOR UNKNOWN INDICATION
     Dosage: 1PUFF TWICE PER DAY
     Route: 055
     Dates: start: 20100101
  6. SYNTHROID [Concomitant]
  7. VALIUM [Concomitant]
  8. XANAX [Concomitant]
  9. POTASSIUM [Concomitant]

REACTIONS (1)
  - DYSPNOEA [None]
